FAERS Safety Report 8215195-1 (Version None)
Quarter: 2012Q1

REPORT INFORMATION
  Report Type: 
  Country: None (occurrence: None)
  Receive Date: 20120316
  Receipt Date: 20120307
  Transmission Date: 20120608
  Serious: Yes (Hospitalization)
  Sender: FDA-Public Use
  Company Number: GB-JNJFOC-20110505102

PATIENT
  Sex: Male

DRUGS (13)
  1. ZOLADEX [Concomitant]
     Route: 058
     Dates: start: 20040428
  2. MOVICAL [Concomitant]
     Indication: CONSTIPATION
     Route: 048
     Dates: start: 20100929
  3. CODEINE SULFATE [Concomitant]
     Indication: ARTHRALGIA
     Route: 048
     Dates: start: 20100928
  4. ABIRATERONE ACETATE [Suspect]
     Indication: PROSTATE CANCER METASTATIC
     Route: 048
  5. PROCHLORPERAZINE MALEATE [Concomitant]
     Indication: VOMITING
     Route: 048
     Dates: start: 20110505, end: 20110506
  6. PREDNISOLONE [Suspect]
     Indication: PROSTATE CANCER METASTATIC
     Route: 048
     Dates: start: 20100122
  7. LISINOPRIL [Concomitant]
     Indication: HYPERTENSION
     Route: 048
     Dates: start: 20060811
  8. BENDROFLUMETHIAZIDE [Suspect]
     Indication: HYPERTENSION
     Route: 048
     Dates: start: 20110216, end: 20110506
  9. ABIRATERONE ACETATE [Suspect]
     Route: 048
     Dates: start: 20100122
  10. PREDNISOLONE [Suspect]
     Route: 048
  11. ZOLADEX [Concomitant]
     Indication: PROSTATE CANCER
     Route: 058
     Dates: start: 20100122
  12. ACETAMINOPHEN [Concomitant]
     Indication: ARTHRALGIA
     Route: 048
     Dates: start: 20100928
  13. ENOXAPARIN SODIUM [Concomitant]
     Indication: THROMBOSIS
     Route: 058
     Dates: start: 20110127, end: 20110419

REACTIONS (1)
  - DEHYDRATION [None]
